FAERS Safety Report 5620862-X (Version None)
Quarter: 2008Q1

REPORT INFORMATION
  Report Type: 
  Country: None (occurrence: None)
  Receive Date: 20080208
  Receipt Date: 20080130
  Transmission Date: 20080703
  Serious: Yes (Death)
  Sender: FDA-Public Use
  Company Number: US-ABBOTT-08P-163-0436961-00

PATIENT
  Sex: Male

DRUGS (8)
  1. HYDROCODONE BITARTRATE [Suspect]
     Indication: DRUG USE FOR UNKNOWN INDICATION
     Route: 065
  2. WARFARIN SODIUM [Suspect]
     Indication: DRUG USE FOR UNKNOWN INDICATION
     Route: 065
  3. WARFARIN SODIUM [Suspect]
  4. IBUPROFEN [Suspect]
     Indication: DRUG USE FOR UNKNOWN INDICATION
     Route: 065
  5. OXYCODONE HCL [Suspect]
     Indication: DRUG USE FOR UNKNOWN INDICATION
     Route: 065
  6. CARISOPRODOL [Suspect]
     Indication: DRUG USE FOR UNKNOWN INDICATION
     Route: 065
  7. PREGABALIN [Suspect]
     Indication: DRUG USE FOR UNKNOWN INDICATION
     Route: 065
  8. DIPHENHYDRAMINE HCL [Suspect]
     Indication: DRUG USE FOR UNKNOWN INDICATION
     Route: 065

REACTIONS (1)
  - CARDIO-RESPIRATORY ARREST [None]
